FAERS Safety Report 4551962-3 (Version None)
Quarter: 2004Q4

REPORT INFORMATION
  Report Type: 
  Country: None (occurrence: None)
  Receive Date: 20041217
  Receipt Date: 20041012
  Transmission Date: 20050328
  Serious: No
  Sender: FDA-Public Use
  Company Number: 2004-BP-09851BP

PATIENT
  Age: 77 Year
  Sex: Female

DRUGS (8)
  1. SPIRIVA [Suspect]
     Indication: CHRONIC OBSTRUCTIVE AIRWAYS DISEASE
     Dosage: 18 MCG (18 MCG), IH
     Route: 055
  2. PRILOSEC [Concomitant]
  3. ADVAIR (SERETIDE MITE) [Concomitant]
  4. PROZAC [Concomitant]
  5. CALCIUM WITH VITAMIN D (CALCIUM WITH VITAMIN D) [Concomitant]
  6. VITAMIN C (ASCORBIC ACID) [Concomitant]
  7. FIBERCON (POLYCARBOPHIL CALCIUM) [Concomitant]
  8. ALBUTEROL [Concomitant]

REACTIONS (3)
  - GASTROOESOPHAGEAL REFLUX DISEASE [None]
  - HOARSENESS [None]
  - THROAT IRRITATION [None]
